FAERS Safety Report 5943286-4 (Version None)
Quarter: 2008Q4

REPORT INFORMATION
  Report Type: 
  Country: None (occurrence: None)
  Receive Date: 20081106
  Receipt Date: 20081029
  Transmission Date: 20090506
  Serious: Yes (Other)
  Sender: FDA-Public Use
  Company Number: US-JNJCH-2008053301

PATIENT
  Age: 58 Year
  Sex: Male
  Weight: 90.7 kg

DRUGS (1)
  1. FRESH CITRUS LISTERINE POCKETPAKS [Suspect]
     Indication: BREATH ODOUR
     Dosage: TEXT:ONE STRIP ONE TIME
     Route: 048
     Dates: start: 20081009, end: 20081009

REACTIONS (1)
  - ANAPHYLACTIC REACTION [None]
